FAERS Safety Report 6665808-0 (Version None)
Quarter: 2010Q2

REPORT INFORMATION
  Report Type: 
  Country: None (occurrence: None)
  Receive Date: 20100402
  Receipt Date: 20100323
  Transmission Date: 20101027
  Serious: Yes (Hospitalization, Other)
  Sender: FDA-Public Use
  Company Number: US-PFIZER INC-2010037485

PATIENT
  Sex: Male
  Weight: 73.923 kg

DRUGS (10)
  1. LIPITOR [Suspect]
     Indication: BLOOD CHOLESTEROL INCREASED
     Dosage: 10 MG, 1X/DAY
     Route: 048
  2. LASIX [Concomitant]
     Dosage: 40 MG, 1X/DAY
     Route: 048
  3. PLAVIX [Concomitant]
     Dosage: 75 MG, 1X/DAY
     Route: 048
  4. TRANDATE [Concomitant]
     Dosage: 100 MG, 2X/DAY
     Route: 048
  5. ARICEPT [Concomitant]
     Dosage: 5 MG, 1X/DAY
     Route: 048
  6. LOTREL [Concomitant]
     Dosage: 5/10 DAILY
     Route: 048
  7. ACETYLSALICYLIC ACID [Concomitant]
     Dosage: 81 MG, UNK
     Route: 048
  8. RANEXA [Concomitant]
     Dosage: 500 MG, 1X/DAY
     Route: 048
  9. THEOLAIR [Concomitant]
     Dosage: 20 MG, 2X/DAY
     Route: 048
  10. NAMENDA [Concomitant]
     Dosage: 10 MG, 2X/DAY
     Route: 048

REACTIONS (5)
  - BALANCE DISORDER [None]
  - CARDIAC FAILURE CONGESTIVE [None]
  - DEMENTIA ALZHEIMER'S TYPE [None]
  - EYE DEGENERATIVE DISORDER [None]
  - WEIGHT DECREASED [None]
